FAERS Safety Report 8966760 (Version 1)
Quarter: 2012Q4

REPORT INFORMATION
  Report Type: 
  Country: NL (occurrence: GB)
  Receive Date: 20121214
  Receipt Date: 20121214
  Transmission Date: 20130627
  Serious: Yes (Hospitalization)
  Sender: FDA-Public Use
  Company Number: NL-TEVA-374937ISR

PATIENT
  Age: 50 Year
  Sex: Female

DRUGS (3)
  1. DOXORUBICIN [Suspect]
  2. BLEOMYCIN [Suspect]
  3. DACARBAZINE [Suspect]

REACTIONS (1)
  - Influenza like illness [Unknown]
